FAERS Safety Report 21015981 (Version 4)
Quarter: 2022Q3

REPORT INFORMATION
  Report Type: Spontaneous
  Country: US (occurrence: US)
  Receive Date: 20220628
  Receipt Date: 20220714
  Transmission Date: 20221027
  Serious: No
  Sender: FDA-Public Use
  Company Number: US-ASTELLAS-2022US019651

PATIENT
  Age: 75 Year
  Sex: Female

DRUGS (1)
  1. PADCEV [Suspect]
     Active Substance: ENFORTUMAB VEDOTIN-EJFV
     Indication: Transitional cell carcinoma
     Dosage: 73.5 MG, CYCLIC (ONCE WEEKLY FOR 3 WEEKS AND THEN ONE WEEK OF WITHOUT)
     Route: 042

REACTIONS (3)
  - Blister [Not Recovered/Not Resolved]
  - Rash [Recovered/Resolved]
  - Rash pruritic [Recovered/Resolved]

NARRATIVE: CASE EVENT DATE: 20220527
